FAERS Safety Report 4946373-2 (Version None)
Quarter: 2006Q1

REPORT INFORMATION
  Report Type: 
  Country: None (occurrence: None)
  Receive Date: 20060317
  Receipt Date: 20060307
  Transmission Date: 20060701
  Serious: Yes (Hospitalization)
  Sender: FDA-Public Use
  Company Number: IN-JNJFOC-20060301359

PATIENT
  Sex: Male
  Weight: 82 kg

DRUGS (14)
  1. RISPERIDONE [Suspect]
     Indication: BIPOLAR DISORDER
     Route: 030
  2. LITHIUM [Concomitant]
  3. VALPROATE SODIUM [Concomitant]
  4. LORAZEPAM [Concomitant]
  5. PROPRANOLOL [Concomitant]
  6. AMITRYPTALINE [Concomitant]
  7. CHLORDIAZEPOXIDE [Concomitant]
  8. PACITANE [Concomitant]
  9. AMLODIPINE [Concomitant]
  10. ATENOLOL [Concomitant]
  11. ENALAPRIL MALEATE [Concomitant]
  12. GLIPIZIDE [Concomitant]
  13. METFORMIN [Concomitant]
  14. NORFLOXACIN [Concomitant]
     Indication: URINARY TRACT INFECTION

REACTIONS (1)
  - CATATONIA [None]
